FAERS Safety Report 8306427-X (Version None)
Quarter: 2012Q2

REPORT INFORMATION
  Report Type: 
  Country: None (occurrence: None)
  Receive Date: 20120423
  Receipt Date: 20120412
  Transmission Date: 20120825
  Serious: Yes (Hospitalization, Other)
  Sender: FDA-Public Use
  Company Number: US-MYLANLABS-2012S1005371

PATIENT
  Age: 51 Year
  Sex: Female

DRUGS (2)
  1. BACLOFEN [Suspect]
     Route: 048
     Dates: start: 20120302, end: 20120307
  2. LORAZEPAM [Suspect]
     Indication: ANXIETY
     Route: 048
     Dates: start: 20120227, end: 20120307

REACTIONS (5)
  - NAUSEA [None]
  - ABDOMINAL PAIN UPPER [None]
  - GASTRITIS [None]
  - REACTION TO DRUG EXCIPIENTS [None]
  - CONDITION AGGRAVATED [None]
